FAERS Safety Report 9028689 (Version 8)
Quarter: 2015Q1

REPORT INFORMATION
  Report Type: Spontaneous
  Country: GB (occurrence: GB)
  Receive Date: 20130124
  Receipt Date: 20150225
  Transmission Date: 20150721
  Serious: Yes (Life-Threatening, Hospitalization, Other)
  Sender: FDA-Public Use
  Company Number: PHFR2013GB000561

PATIENT
  Age: 37 Year
  Sex: Male
  Weight: 66 kg

DRUGS (12)
  1. CLOZARIL [Suspect]
     Active Substance: CLOZAPINE
     Indication: SCHIZOPHRENIA
     Dosage: UNK
     Route: 048
     Dates: start: 20010701
  2. DIAZEPAM. [Suspect]
     Active Substance: DIAZEPAM
     Indication: CATATONIA
     Dosage: 45 MG, UNK
     Route: 048
     Dates: start: 20130205, end: 20130208
  3. LANSOPRAZOLE. [Concomitant]
     Active Substance: LANSOPRAZOLE
     Indication: DYSPEPSIA
     Dosage: 30 MG, UNK
     Route: 048
     Dates: start: 20030109
  4. FRESUBIN [Concomitant]
     Active Substance: AMINO ACIDS\DEXTROSE\ELECTROLYTES NOS\SOYBEAN OIL\VITAMINS
     Indication: PRODUCT USED FOR UNKNOWN INDICATION
     Dosage: 300 ML, UNK
     Route: 048
     Dates: start: 20130201, end: 20130206
  5. DIAZEPAM. [Suspect]
     Active Substance: DIAZEPAM
     Dosage: 5 MG, UNK
     Route: 048
  6. LORAZEPAM. [Concomitant]
     Active Substance: LORAZEPAM
     Indication: PRODUCT USED FOR UNKNOWN INDICATION
     Dosage: UNK
  7. VITAMIN B COMPOUND                 /00003501/ [Concomitant]
     Indication: WERNICKE^S ENCEPHALOPATHY
     Dosage: UNK
     Route: 048
     Dates: start: 20130109, end: 20130206
  8. CLOZARIL [Suspect]
     Active Substance: CLOZAPINE
     Dosage: 175 MG, UNK
     Route: 048
     Dates: start: 20130122, end: 20130208
  9. CLOZARIL [Suspect]
     Active Substance: CLOZAPINE
     Dosage: UNK
     Route: 048
     Dates: start: 20130227
  10. CLOZARIL [Suspect]
     Active Substance: CLOZAPINE
     Dosage: 350 MG, UNK
     Route: 048
  11. LORAZEPAM. [Concomitant]
     Active Substance: LORAZEPAM
     Dosage: UNK
     Route: 065
  12. THIAMINE [Concomitant]
     Active Substance: THIAMINE
     Indication: WERNICKE^S ENCEPHALOPATHY
     Dosage: 300 MG, UNK
     Route: 048
     Dates: start: 20130109, end: 20130206

REACTIONS (12)
  - White blood cell count decreased [Recovered/Resolved]
  - Oculocephalogyric reflex absent [Unknown]
  - Miosis [Unknown]
  - Respiratory depression [Recovered/Resolved]
  - Mental impairment [Unknown]
  - Platelet count decreased [Recovered/Resolved]
  - Blood creatine phosphokinase increased [Unknown]
  - Coma [Recovering/Resolving]
  - Catatonia [Recovered/Resolved]
  - Differential white blood cell count abnormal [Unknown]
  - Neuroleptic malignant syndrome [Recovered/Resolved]
  - Neutrophil count decreased [Recovered/Resolved]

NARRATIVE: CASE EVENT DATE: 20130206
